FAERS Safety Report 5498859-2 (Version None)
Quarter: 2007Q4

REPORT INFORMATION
  Report Type: 
  Country: None (occurrence: None)
  Receive Date: 20071026
  Receipt Date: 20070910
  Transmission Date: 20080405
  Serious: No
  Sender: FDA-Public Use
  Company Number: A0666748A

PATIENT
  Age: 58 Year
  Sex: Female

DRUGS (5)
  1. ADVAIR DISKUS 100/50 [Suspect]
     Indication: ASTHMA
     Dosage: 1PUFF PER DAY
     Route: 055
     Dates: start: 20060201
  2. ALBUTEROL [Concomitant]
  3. LISINOPRIL [Concomitant]
  4. HYDROCHLOROTHIAZIDE [Concomitant]
  5. LEVOTHYROXINE SODIUM [Concomitant]

REACTIONS (2)
  - DYSPNOEA [None]
  - PHARMACEUTICAL PRODUCT COMPLAINT [None]
